FAERS Safety Report 11727422 (Version 1)
Quarter: 2015Q4

REPORT INFORMATION
  Report Type: Spontaneous
  Country: BR (occurrence: BR)
  Receive Date: 20151112
  Receipt Date: 20151112
  Transmission Date: 20160304
  Serious: Yes (Other)
  Sender: FDA-Public Use
  Company Number: BR-JNJFOC-20150416067

PATIENT
  Sex: Female

DRUGS (1)
  1. SIMPONI [Suspect]
     Active Substance: GOLIMUMAB
     Indication: RHEUMATOID ARTHRITIS
     Route: 058

REACTIONS (5)
  - Oral fungal infection [Unknown]
  - Myocardial infarction [Unknown]
  - Hypertension [Unknown]
  - Dysphagia [Unknown]
  - Vomiting [Unknown]

NARRATIVE: CASE EVENT DATE: 2015
